FAERS Safety Report 24259079 (Version 5)
Quarter: 2024Q4

REPORT INFORMATION
  Report Type: Spontaneous
  Country: US (occurrence: US)
  Receive Date: 20240828
  Receipt Date: 20241031
  Transmission Date: 20250114
  Serious: No
  Sender: PFIZER
  Company Number: US-PFIZER INC-202400189592

PATIENT
  Age: 62 Year
  Sex: Female

DRUGS (2)
  1. TUKYSA [Suspect]
     Active Substance: TUCATINIB
     Indication: Breast cancer female
     Dosage: 1 TABLET TWICE A DAY
     Route: 048
     Dates: end: 20241009
  2. OXYCODONE [Concomitant]
     Active Substance: OXYCODONE
     Indication: Arthralgia
     Dosage: UNK

REACTIONS (4)
  - Memory impairment [Unknown]
  - Hypoacusis [Unknown]
  - Bradykinesia [Unknown]
  - Off label use [Unknown]

NARRATIVE: CASE EVENT DATE: 20240916
